FAERS Safety Report 11282946 (Version 1)
Quarter: 2015Q3

REPORT INFORMATION
  Report Type: Spontaneous
  Country: IT (occurrence: None)
  Receive Date: 20150716
  Receipt Date: 20150716
  Transmission Date: 20151125
  Serious: Yes (Hospitalization, Disabling, Other)
  Sender: FDA-Public Use
  Company Number: 2015JUB00215

PATIENT
  Age: 16 Year
  Sex: Female

DRUGS (2)
  1. MYCOPHENOLATE MOFETIL (MYCOPHENOLATE MOFETIL) UNKNOWN [Suspect]
     Active Substance: MYCOPHENOLATE MOFETIL
     Indication: SYSTEMIC LUPUS ERYTHEMATOSUS
  2. PREDNISONE (PREDNISONE) [Suspect]
     Active Substance: PREDNISONE

REACTIONS (7)
  - Coma [None]
  - Brain abscess [None]
  - Tachycardia [None]
  - Hemiparesis [None]
  - Status epilepticus [None]
  - Frontotemporal dementia [None]
  - Listeriosis [None]

NARRATIVE: CASE EVENT DATE: 201312
